FAERS Safety Report 5728371-4 (Version None)
Quarter: 2008Q2

REPORT INFORMATION
  Report Type: 
  Country: None (occurrence: None)
  Receive Date: 20080502
  Receipt Date: 20080502
  Transmission Date: 20081010
  Serious: No
  Sender: FDA-Public Use
  Company Number: None

PATIENT
  Age: 95 Year
  Sex: Male

DRUGS (1)
  1. SONATA [Suspect]
     Dosage: PO
     Route: 048
     Dates: start: 20080415, end: 20080415

REACTIONS (2)
  - CONFUSIONAL STATE [None]
  - HALLUCINATION [None]
